FAERS Safety Report 8115543-7 (Version None)
Quarter: 2012Q1

REPORT INFORMATION
  Report Type: 
  Country: None (occurrence: None)
  Receive Date: 20120206
  Receipt Date: 20120124
  Transmission Date: 20120608
  Serious: Yes (Hospitalization)
  Sender: FDA-Public Use
  Company Number: ES-ELI_LILLY_AND_COMPANY-ES201201007169

PATIENT
  Sex: Male
  Weight: 50 kg

DRUGS (4)
  1. FORTEO [Suspect]
     Indication: OSTEOPOROSIS
     Dosage: 20 UG, QD
     Route: 058
     Dates: start: 20110414, end: 20120101
  2. MESALAMINE [Concomitant]
     Indication: CROHN'S DISEASE
     Dosage: 3000 MG, QD
     Route: 048
  3. TANAGEL [Concomitant]
     Indication: DIARRHOEA
     Dosage: 6 DF, QD
     Route: 048
  4. OMEPRAZOLE [Concomitant]
     Indication: PROPHYLAXIS
     Dosage: 20 MG, QD
     Route: 048

REACTIONS (1)
  - NEPHROLITHIASIS [None]
